FAERS Safety Report 7375853-8 (Version None)
Quarter: 2011Q1

REPORT INFORMATION
  Report Type: 
  Country: None (occurrence: None)
  Receive Date: 20110325
  Receipt Date: 20110321
  Transmission Date: 20110831
  Serious: Yes (Hospitalization)
  Sender: FDA-Public Use
  Company Number: A0915078A

PATIENT
  Age: 59 Year
  Sex: Male
  Weight: 78.2 kg

DRUGS (4)
  1. KALETRA [Concomitant]
  2. TRICOR [Concomitant]
  3. CRESTOR [Concomitant]
  4. EPZICOM [Suspect]
     Indication: HIV INFECTION
     Dosage: 1TAB PER DAY
     Route: 048
     Dates: start: 20060901

REACTIONS (2)
  - CHEST PAIN [None]
  - ANGIOPLASTY [None]
